FAERS Safety Report 16326162 (Version 1)
Quarter: 2019Q2

REPORT INFORMATION
  Report Type: Spontaneous
  Country: DE (occurrence: DE)
  Receive Date: 20190517
  Receipt Date: 20190517
  Transmission Date: 20190711
  Serious: Yes (Death, Hospitalization)
  Sender: FDA-Public Use
  Company Number: DE-SA-2019SA132354

PATIENT
  Age: 55 Year
  Sex: Female

DRUGS (32)
  1. VALERIANA OFFICINALIS EXTRACT [Suspect]
     Active Substance: VALERIAN
     Indication: SEDATION
     Dosage: 1 DF, UNK
     Route: 048
     Dates: start: 19970626, end: 19970626
  2. VALIUM [Concomitant]
     Active Substance: DIAZEPAM
     Indication: SEDATION
     Route: 048
     Dates: start: 19970603, end: 19970701
  3. VANCOMYCIN [Concomitant]
     Active Substance: VANCOMYCIN
     Indication: ABSCESS
     Route: 042
     Dates: start: 19970701, end: 19970701
  4. ONDANSETRON [Suspect]
     Active Substance: ONDANSETRON
     Indication: NAUSEA
     Dosage: UNK UNK, UNK
     Route: 050
     Dates: start: 19970630, end: 19970630
  5. VOMEX A [Suspect]
     Active Substance: DIMENHYDRINATE
     Indication: NAUSEA
     Dosage: 1 DF, UNK
     Route: 054
     Dates: start: 19970630, end: 19970630
  6. RIVOTRIL [Concomitant]
     Active Substance: CLONAZEPAM
     Indication: EPILEPSY
     Route: 042
     Dates: start: 19970701, end: 19970701
  7. CLAFORAN [Concomitant]
     Active Substance: CEFOTAXIME SODIUM
     Indication: ABSCESS
     Dosage: 2 G, UNK
     Route: 042
     Dates: start: 19970701, end: 19970701
  8. PARACETAMOL [Concomitant]
     Active Substance: ACETAMINOPHEN
     Indication: PYREXIA
     Dosage: 1 G, UNK
     Route: 054
     Dates: start: 19970701, end: 19970701
  9. TITANIUM. [Concomitant]
     Active Substance: TITANIUM
     Indication: COMPUTERISED TOMOGRAM
     Route: 042
     Dates: start: 19970603, end: 19970603
  10. CYTOTEC [Concomitant]
     Active Substance: MISOPROSTOL
     Indication: PROPHYLAXIS
     Dosage: 200 MG, UNK
     Route: 048
     Dates: start: 19970603, end: 19970707
  11. LORMETAZEPAM [Suspect]
     Active Substance: LORMETAZEPAM
     Indication: SLEEP DISORDER
     Dosage: 2 MG, UNK
     Route: 048
     Dates: start: 19970608, end: 19970611
  12. JONOSTERIL [CALCIUM ACETATE;MAGNESIUM ACETATE;POTASSIUM ACETATE;SODIUM [Concomitant]
     Indication: FLUID REPLACEMENT
     Dosage: 500 ML, UNK
     Route: 042
     Dates: start: 19970603, end: 19970603
  13. LAXOBERAL [Concomitant]
     Active Substance: SODIUM PICOSULFATE
     Indication: CONSTIPATION
     Dosage: 15 DROP, UNK
     Route: 048
     Dates: start: 19970604, end: 19970604
  14. NOVALGIN (METAMIZOLE SODIUM) [Concomitant]
     Active Substance: METAMIZOLE SODIUM
     Indication: PAIN PROPHYLAXIS
     Dosage: 2 ML, UNK
     Route: 042
     Dates: start: 19970701, end: 19970701
  15. FORTECORTIN [DEXAMETHASONE] [Concomitant]
     Active Substance: DEXAMETHASONE
     Indication: PROPHYLAXIS
     Dosage: UNK UNK, UNK
     Route: 050
     Dates: start: 19970603, end: 19970707
  16. EUGALAC [Concomitant]
     Indication: CONSTIPATION
     Dosage: UNK, UNK
     Route: 048
     Dates: start: 19970608, end: 19970612
  17. EUNERPAN [Suspect]
     Active Substance: MELPERONE HYDROCHLORIDE
     Indication: SEDATION
     Dosage: UNK UNK, UNK
     Route: 048
     Dates: start: 19970611, end: 19970622
  18. PEPDUL [Concomitant]
     Active Substance: FAMOTIDINE
     Indication: PROPHYLAXIS
     Dosage: 1 DF, UNK
     Route: 048
  19. FOSFOCINA [FOSFOMYCIN] [Concomitant]
     Indication: ABSCESS
     Dosage: UNK UNK, UNK
     Route: 042
     Dates: start: 19970701, end: 19970701
  20. CLEXANE [Suspect]
     Active Substance: ENOXAPARIN SODIUM
     Indication: THROMBOSIS PROPHYLAXIS
     Dosage: 0.2 ML, UNK
     Route: 058
     Dates: start: 19970612, end: 19970630
  21. SULFAMETHOXAZOLE/TRIMETHOPRIM [Suspect]
     Active Substance: SULFAMETHOXAZOLE\TRIMETHOPRIM
     Indication: URINARY TRACT INFECTION
     Dosage: 1 DF, UNK
     Route: 048
     Dates: start: 19970608, end: 19970612
  22. CEFOTIAM HYDROCHLORIDE [Suspect]
     Active Substance: CEFOTIAM HYDROCHLORIDE
     Indication: PNEUMONIA
     Dosage: 2 G, UNK
     Route: 042
     Dates: start: 19970630, end: 19970630
  23. ONDANSETRON [Suspect]
     Active Substance: ONDANSETRON
     Dosage: 8 MG, UNK
     Route: 050
     Dates: start: 19970701, end: 19970701
  24. ORFIRIL [Concomitant]
     Active Substance: VALPROATE SODIUM
     Indication: EPILEPSY
     Dosage: 150 MG, UNK
     Route: 048
     Dates: start: 19970701, end: 19970701
  25. PHENHYDAN [PHENYTOIN CALCIUM] [Concomitant]
     Indication: EPILEPSY
     Dosage: UNK UNK, UNK
     Route: 042
     Dates: start: 19970701, end: 19970701
  26. ATOSIL [PROMETHAZINE HYDROCHLORIDE] [Concomitant]
     Active Substance: PROMETHAZINE HYDROCHLORIDE
     Indication: SEDATION
     Route: 042
     Dates: start: 19970701, end: 19970701
  27. AMITRIPTYLINE HYDROCHLORIDE. [Suspect]
     Active Substance: AMITRIPTYLINE HYDROCHLORIDE
     Indication: DEPRESSION
     Dosage: 50 MG, UNK
     Route: 048
     Dates: start: 19970624, end: 19970707
  28. PHENYTOIN. [Suspect]
     Active Substance: PHENYTOIN
     Indication: EPILEPSY
     Dosage: 1 DF, UNK
     Route: 048
  29. LORAZEPAM. [Suspect]
     Active Substance: LORAZEPAM
     Indication: NERVOUSNESS
     Dosage: 1 MG, UNK
     Route: 048
     Dates: start: 19970619, end: 19970707
  30. EUNERPAN [Suspect]
     Active Substance: MELPERONE HYDROCHLORIDE
     Dosage: UNK UNK, UNK
     Route: 048
     Dates: start: 19970625, end: 19970707
  31. REFOBACIN [Concomitant]
     Active Substance: GENTAMICIN SULFATE
     Indication: ABSCESS
     Dosage: UNK
     Route: 042
     Dates: start: 19970701, end: 19970701
  32. SODIUM CHLORIDE. [Concomitant]
     Active Substance: SODIUM CHLORIDE
     Indication: FLUID REPLACEMENT
     Dosage: 500 ML, UNK
     Route: 042
     Dates: start: 19970630, end: 19970707

REACTIONS (10)
  - Oedema mucosal [Unknown]
  - Toxic epidermal necrolysis [Fatal]
  - Rash vesicular [Unknown]
  - Swelling face [Unknown]
  - Pyrexia [Unknown]
  - Lip swelling [Unknown]
  - Headache [Unknown]
  - Rash [Unknown]
  - Erythema [Unknown]
  - Genital rash [Unknown]

NARRATIVE: CASE EVENT DATE: 19970630
